FAERS Safety Report 15728477 (Version 2)
Quarter: 2019Q1

REPORT INFORMATION
  Report Type: Report from Study
  Country: CO (occurrence: CO)
  Receive Date: 20181217
  Receipt Date: 20190114
  Transmission Date: 20190417
  Serious: Yes (Hospitalization)
  Sender: FDA-Public Use
  Company Number: PHHY2018CO187414

PATIENT
  Age: 58 Year
  Sex: Female
  Weight: 50 kg

DRUGS (3)
  1. VOTRIENT [Suspect]
     Active Substance: PAZOPANIB HYDROCHLORIDE
     Indication: METASTATIC RENAL CELL CARCINOMA
     Dosage: 800 MG, QD
     Route: 048
     Dates: start: 201811
  2. OXYCODONE [Concomitant]
     Active Substance: OXYCODONE
     Indication: PAIN
     Dosage: UNK UNK, Q8H
     Route: 048
     Dates: start: 201811
  3. VOTRIENT [Suspect]
     Active Substance: PAZOPANIB HYDROCHLORIDE
     Dosage: 400 MG, QD
     Route: 048
     Dates: end: 201812

REACTIONS (8)
  - Vomiting [Unknown]
  - Asthenia [Unknown]
  - Depression [Unknown]
  - Headache [Unknown]
  - Depressed mood [Unknown]
  - Abdominal pain upper [Unknown]
  - Ear pain [Unknown]
  - Drug intolerance [Unknown]

NARRATIVE: CASE EVENT DATE: 20181206
